FAERS Safety Report 11912010 (Version 1)
Quarter: 2016Q1

REPORT INFORMATION
  Report Type: Spontaneous
  Country: CN (occurrence: CN)
  Receive Date: 20160112
  Receipt Date: 20160112
  Transmission Date: 20160526
  Serious: Yes (Other)
  Sender: FDA-Public Use
  Company Number: CN-MYLANLABS-2016M1001195

PATIENT

DRUGS (12)
  1. CYTARABINE. [Suspect]
     Active Substance: CYTARABINE
     Indication: ACUTE LYMPHOCYTIC LEUKAEMIA
     Dosage: 50MG
     Route: 037
  2. VINCRISTINE [Suspect]
     Active Substance: VINCRISTINE
     Dosage: 2MG ON DAYS 4 AND 11
     Route: 065
     Dates: start: 20131118
  3. ASPARAGINASE [Suspect]
     Active Substance: ASPARAGINASE
     Indication: ACUTE LYMPHOCYTIC LEUKAEMIA
     Dosage: 10000 U ON DAYS 13-22
     Route: 065
     Dates: start: 20130912
  4. PIRARUBICIN [Suspect]
     Active Substance: PIRARUBICIN
     Indication: ACUTE LYMPHOCYTIC LEUKAEMIA
     Dosage: 72MG ON DAY 4
     Route: 065
     Dates: start: 20131118
  5. CYCLOPHOSPHAMIDE. [Suspect]
     Active Substance: CYCLOPHOSPHAMIDE
     Dosage: 435MG ONCE EVERY 12 HOURS, DAYS 1-3
     Route: 065
     Dates: start: 20131118
  6. DEXAMETHASONE. [Suspect]
     Active Substance: DEXAMETHASONE
     Dosage: 40MG DAYS 1-4, DAYS 11-14
     Route: 065
     Dates: start: 20131118
  7. DEXAMETHASONE. [Suspect]
     Active Substance: DEXAMETHASONE
     Dosage: 5MG
     Route: 037
  8. VINCRISTINE [Suspect]
     Active Substance: VINCRISTINE
     Indication: ACUTE LYMPHOCYTIC LEUKAEMIA
     Dosage: 2MG ON DAYS 1, 8, 15 AND 22
     Route: 065
     Dates: start: 20130912
  9. DEXAMETHASONE. [Suspect]
     Active Substance: DEXAMETHASONE
     Indication: ACUTE LYMPHOCYTIC LEUKAEMIA
     Dosage: 10MG ON DAYS 1-14
     Route: 065
     Dates: start: 20130912
  10. METHOTREXATE [Suspect]
     Active Substance: METHOTREXATE
     Indication: ACUTE LYMPHOCYTIC LEUKAEMIA
     Dosage: 10MG
     Route: 037
  11. IDARUBICIN [Suspect]
     Active Substance: IDARUBICIN
     Indication: ACUTE LYMPHOCYTIC LEUKAEMIA
     Dosage: 10MG ON DAYS 1-3 AND DAYS 15-17
     Route: 065
     Dates: start: 20130912
  12. CYCLOPHOSPHAMIDE. [Suspect]
     Active Substance: CYCLOPHOSPHAMIDE
     Indication: ACUTE LYMPHOCYTIC LEUKAEMIA
     Dosage: 1.1G ON DAYS 1 AND 15
     Route: 065
     Dates: start: 20130912

REACTIONS (1)
  - Posterior reversible encephalopathy syndrome [Recovered/Resolved]
